FAERS Safety Report 9538011 (Version 2)
Quarter: 2013Q3

REPORT INFORMATION
  Report Type: Report from Study
  Country: US (occurrence: US)
  Receive Date: 20130919
  Receipt Date: 20130919
  Transmission Date: 20140515
  Serious: Yes (Hospitalization)
  Sender: FDA-Public Use
  Company Number: US-ABBVIE-13P-163-1048625-00

PATIENT
  Age: 66 Year
  Sex: Female

DRUGS (1)
  1. HUMIRA [Suspect]
     Indication: CROHN^S DISEASE
     Dates: start: 2010

REACTIONS (8)
  - Hepatomegaly [Recovered/Resolved]
  - Injection site pain [Recovered/Resolved]
  - Malaise [Recovered/Resolved]
  - Sinusitis [Recovered/Resolved]
  - Asthma [Recovered/Resolved]
  - Drug dose omission [Recovered/Resolved]
  - Crohn^s disease [Recovered/Resolved]
  - Hepatic lesion [Recovered/Resolved]
